FAERS Safety Report 13787079 (Version 3)
Quarter: 2017Q3

REPORT INFORMATION
  Report Type: Report from Study
  Country: US (occurrence: US)
  Receive Date: 20170725
  Receipt Date: 20170822
  Transmission Date: 20171127
  Serious: Yes (Hospitalization, Other)
  Sender: FDA-Public Use
  Company Number: US-TAKEDA-2017TUS015255

PATIENT

DRUGS (7)
  1. CEFPODOXIME [Concomitant]
     Active Substance: CEFPODOXIME
     Indication: CHONDROCALCINOSIS PYROPHOSPHATE
  2. VEDOLIZUMAB [Suspect]
     Active Substance: VEDOLIZUMAB
     Indication: COLITIS ULCERATIVE
     Dosage: 300 MG, UNK
     Route: 042
     Dates: start: 20160812
  3. VEDOLIZUMAB [Suspect]
     Active Substance: VEDOLIZUMAB
     Dosage: 300 MG, Q4WEEKS
     Route: 042
     Dates: start: 2017
  4. AZATHIOPRINE. [Suspect]
     Active Substance: AZATHIOPRINE
     Indication: COLITIS ULCERATIVE
     Dosage: 50 MG, QD
     Route: 065
     Dates: start: 201707, end: 20170726
  5. PREDNISONE. [Concomitant]
     Active Substance: PREDNISONE
     Indication: COLITIS ULCERATIVE
     Dosage: UNK UNK, BID
     Dates: start: 20170722
  6. CEFPODOXIME [Concomitant]
     Active Substance: CEFPODOXIME
     Indication: PYREXIA
     Dosage: UNK
     Dates: start: 20170722
  7. APRISO [Concomitant]
     Active Substance: MESALAMINE
     Indication: COLITIS ULCERATIVE
     Dosage: 0.375 MG, QID
     Dates: start: 20151117

REACTIONS (5)
  - Drug dose omission [Unknown]
  - Drug ineffective [Unknown]
  - Off label use [Unknown]
  - Chondrocalcinosis pyrophosphate [Recovering/Resolving]
  - Sepsis [Unknown]

NARRATIVE: CASE EVENT DATE: 201611
